FAERS Safety Report 7324698-3 (Version None)
Quarter: 2011Q1

REPORT INFORMATION
  Report Type: 
  Country: None (occurrence: None)
  Receive Date: 20110301
  Receipt Date: 20110218
  Transmission Date: 20110831
  Serious: Yes (Hospitalization)
  Sender: FDA-Public Use
  Company Number: ES-BAXTER-2011BH004121

PATIENT
  Age: 67 Year
  Sex: Male

DRUGS (3)
  1. EXTRANEAL [Suspect]
     Indication: PERITONEAL DIALYSIS
     Route: 033
     Dates: start: 20091209, end: 20110202
  2. NUTRINEAL [Suspect]
     Indication: PERITONEAL DIALYSIS
     Route: 033
     Dates: start: 20091209
  3. PHYSIOSOL IN PLASTIC CONTAINER [Suspect]
     Indication: PERITONEAL DIALYSIS
     Route: 033
     Dates: start: 20091209

REACTIONS (7)
  - BLOOD SODIUM ABNORMAL [None]
  - BRADYPHRENIA [None]
  - DEPRESSED LEVEL OF CONSCIOUSNESS [None]
  - HYPOREFLEXIA [None]
  - HYPERSOMNIA [None]
  - SYNCOPE [None]
  - OEDEMA [None]
